FAERS Safety Report 8757759 (Version 2)
Quarter: 2013Q1

REPORT INFORMATION
  Report Type: Report from Study
  Country: JP (occurrence: JP)
  Receive Date: 20120828
  Receipt Date: 20130329
  Transmission Date: 20140127
  Serious: Yes (Other)
  Sender: FDA-Public Use
  Company Number: JP-VERTEX PHARMACEUTICAL INC.-2012-019969

PATIENT
  Age: 49 Year
  Sex: Female

DRUGS (15)
  1. VX-950 (TELAPREVIR) [Suspect]
     Indication: CHRONIC HEPATITIS C
     Dosage: 1500 MG, QD
     Route: 048
     Dates: start: 21020702
  2. RIBAVIRIN [Suspect]
     Indication: CHRONIC HEPATITIS C
     Dosage: 800 MG, QD
     Route: 048
     Dates: start: 20120702, end: 20120802
  3. RIBAVIRIN [Suspect]
     Dosage: 600 MG, QD
     Route: 048
     Dates: start: 20120803
  4. PEGINTRON [Suspect]
     Indication: CHRONIC HEPATITIS C
     Dosage: 1.259 ?G/KG, QW
     Route: 058
     Dates: start: 20120702, end: 20120807
  5. PEGINTRON [Suspect]
     Dosage: 1.0 ?G/KG, QW
     Route: 058
     Dates: start: 20120808
  6. WINTERMIN [Concomitant]
     Dosage: 0.75 MG, QD
     Route: 048
  7. HIBERNA [Concomitant]
     Dosage: 0.3 G, QD
     Route: 048
  8. ROHYPNOL [Concomitant]
     Dosage: 2 MG, QD
     Route: 048
  9. SOMELIN [Concomitant]
     Dosage: 10 MG, QD
     Route: 048
  10. ALOSENN [Concomitant]
     Dosage: 1.0 G, QD
     Route: 048
  11. LOXONIN [Concomitant]
     Dosage: 180 MG, QD/PRN
     Route: 048
     Dates: start: 21020702
  12. MUCOSTA [Concomitant]
     Dosage: 300 MG, QD
     Route: 048
     Dates: start: 20120702
  13. PRIMPERAN [Concomitant]
     Dosage: 15 MG, QD
     Route: 048
     Dates: start: 20120702
  14. ALLEGRA [Concomitant]
     Dosage: 120 MG, QD
     Route: 048
     Dates: start: 20120702
  15. RISPERIDONE [Concomitant]
     Dosage: 1 MG, QD
     Route: 048

REACTIONS (1)
  - Neutrophil count decreased [Recovered/Resolved]
